FAERS Safety Report 22381926 (Version 1)
Quarter: 2023Q2

REPORT INFORMATION
  Report Type: Other
  Country: CN (occurrence: CN)
  Receive Date: 20230530
  Receipt Date: 20230530
  Transmission Date: 20230722
  Serious: Yes (Other)
  Sender: FDA-Public Use
  Company Number: None

PATIENT
  Age: 34 Year
  Sex: Male
  Weight: 72.5 kg

DRUGS (2)
  1. FOSAPREPITANT DIMEGLUMINE [Suspect]
     Active Substance: FOSAPREPITANT DIMEGLUMINE
     Indication: Symptomatic treatment
     Route: 042
     Dates: start: 20230422, end: 20230422
  2. SODIUM CHLORIDE [Concomitant]
     Active Substance: SODIUM CHLORIDE
     Indication: Vehicle solution use
     Dosage: 150.000000ML ONCE DAILY
     Route: 042
     Dates: start: 20230422, end: 20230422

REACTIONS (4)
  - Ocular hyperaemia [Recovered/Resolved]
  - Pruritus [Recovered/Resolved]
  - Muscle twitching [Recovered/Resolved]
  - Depressed level of consciousness [Recovered/Resolved]

NARRATIVE: CASE EVENT DATE: 20230422
